FAERS Safety Report 15837660 (Version 2)
Quarter: 2019Q1

REPORT INFORMATION
  Report Type: Spontaneous
  Country: US (occurrence: US)
  Receive Date: 20190117
  Receipt Date: 20190221
  Transmission Date: 20190417
  Serious: No
  Sender: FDA-Public Use
  Company Number: US-GLAXOSMITHKLINE-US2019GSK004614

PATIENT
  Sex: Female
  Weight: 68.93 kg

DRUGS (1)
  1. BREO ELLIPTA [Suspect]
     Active Substance: FLUTICASONE FUROATE\VILANTEROL TRIFENATATE
     Indication: PRODUCT USED FOR UNKNOWN INDICATION
     Dosage: UNK
     Route: 055
     Dates: start: 20160101, end: 201811

REACTIONS (9)
  - Balance disorder [Unknown]
  - Dizziness [Unknown]
  - Vision blurred [Unknown]
  - Influenza [Unknown]
  - Migraine [Unknown]
  - Headache [Unknown]
  - Gait disturbance [Unknown]
  - Nausea [Unknown]
  - Lethargy [Unknown]
